FAERS Safety Report 8493682-9 (Version None)
Quarter: 2012Q3

REPORT INFORMATION
  Report Type: 
  Country: None (occurrence: None)
  Receive Date: 20120706
  Receipt Date: 20120619
  Transmission Date: 20120928
  Serious: Yes (Death, Hospitalization)
  Sender: FDA-Public Use
  Company Number: PHHY2011TH83743

PATIENT
  Sex: Male

DRUGS (4)
  1. IMATINIB MESYLATE [Suspect]
     Dosage: 600 MG PER DAY
     Route: 048
  2. IMATINIB MESYLATE [Suspect]
     Indication: CHRONIC MYELOID LEUKAEMIA
     Dosage: 400 MG, UNK
     Route: 048
     Dates: start: 20110224
  3. IMATINIB MESYLATE [Suspect]
     Dosage: 400 MG, BID
     Route: 048
  4. IMATINIB MESYLATE [Suspect]
     Dosage: 400 MG PER DAY
     Route: 048
     Dates: start: 20110827

REACTIONS (4)
  - APHAGIA [None]
  - DRUG INEFFECTIVE [None]
  - DEATH [None]
  - ASTHENIA [None]
